FAERS Safety Report 10256402 (Version 1)
Quarter: 2014Q2

REPORT INFORMATION
  Report Type: Spontaneous
  Country: US (occurrence: US)
  Receive Date: 20140624
  Receipt Date: 20140624
  Transmission Date: 20141212
  Serious: Yes (Other)
  Sender: FDA-Public Use
  Company Number: US-TEVA-489625USA

PATIENT
  Sex: Female

DRUGS (1)
  1. ENPRESSE [Suspect]
     Dosage: 0.05MG/0.03MG
     Dates: start: 2011

REACTIONS (1)
  - Haemorrhage [Unknown]
